FAERS Safety Report 4956023-7 (Version None)
Quarter: 2006Q1

REPORT INFORMATION
  Report Type: 
  Country: None (occurrence: None)
  Receive Date: 20060328
  Receipt Date: 20050706
  Transmission Date: 20060701
  Serious: Yes (Hospitalization, Other)
  Sender: FDA-Public Use
  Company Number: US-MERCK-0507USA01027

PATIENT
  Age: 70 Year
  Sex: Male
  Weight: 95 kg

DRUGS (19)
  1. VIOXX [Suspect]
     Indication: RHEUMATOID ARTHRITIS
     Route: 048
     Dates: start: 19990601, end: 20040501
  2. PREDNISONE [Concomitant]
     Route: 065
     Dates: start: 19990628
  3. PREDNISONE [Concomitant]
     Route: 065
     Dates: start: 19990929
  4. PREDNISONE [Concomitant]
     Route: 065
  5. METHOTREXATE [Concomitant]
     Route: 065
  6. METHOTREXATE [Concomitant]
     Route: 065
     Dates: start: 19990628
  7. METHOTREXATE [Concomitant]
     Route: 065
  8. ULTRAM [Concomitant]
     Route: 065
  9. CELEXA [Concomitant]
     Route: 065
  10. CEPHALEXIN [Concomitant]
     Indication: WOUND
     Route: 065
  11. FOLIC ACID [Concomitant]
     Route: 065
     Dates: start: 19990628
  12. IRON (UNSPECIFIED) [Concomitant]
     Route: 065
  13. COLACE [Concomitant]
     Route: 065
  14. HYDROCODONE BITARTRATE [Concomitant]
     Route: 065
  15. METFORMIN [Concomitant]
     Indication: DIABETES MELLITUS
     Route: 048
  16. ZETIA [Concomitant]
     Route: 048
  17. WELLBUTRIN [Suspect]
     Route: 065
  18. TRENTAL [Suspect]
     Route: 065
  19. AGGRENOX [Concomitant]
     Route: 065

REACTIONS (30)
  - ABDOMINAL PAIN [None]
  - AORTIC VALVE STENOSIS [None]
  - ARTHROPATHY [None]
  - ASTHENIA [None]
  - BACK DISORDER [None]
  - BACK PAIN [None]
  - BLOOD CREATININE INCREASED [None]
  - BLOOD SODIUM INCREASED [None]
  - BUNDLE BRANCH BLOCK RIGHT [None]
  - BURSITIS INFECTIVE [None]
  - CEREBROVASCULAR ACCIDENT [None]
  - CONSTIPATION [None]
  - DEPRESSION [None]
  - DIABETES MELLITUS [None]
  - DYSPNOEA [None]
  - ERYTHEMA [None]
  - FAECALOMA [None]
  - FATIGUE [None]
  - GASTRIC DISORDER [None]
  - INCISIONAL DRAINAGE [None]
  - INSOMNIA [None]
  - NAUSEA [None]
  - NERVOUS SYSTEM DISORDER [None]
  - OEDEMA PERIPHERAL [None]
  - OSTEOPENIA [None]
  - PERICARDITIS [None]
  - RENAL FAILURE [None]
  - RENAL FAILURE CHRONIC [None]
  - VERTEBRAL ARTERY OCCLUSION [None]
  - VOMITING [None]
